FAERS Safety Report 14845318 (Version 1)
Quarter: 2018Q2

REPORT INFORMATION
  Report Type: Spontaneous
  Country: US (occurrence: US)
  Receive Date: 20180504
  Receipt Date: 20180504
  Transmission Date: 20180711
  Serious: No
  Sender: FDA-Public Use
  Company Number: US-ASTRAZENECA-2018SE45111

PATIENT
  Age: 26896 Day
  Sex: Female
  Weight: 77.1 kg

DRUGS (2)
  1. METFORMIN [Concomitant]
     Active Substance: METFORMIN HYDROCHLORIDE
  2. FARXIGA [Suspect]
     Active Substance: DAPAGLIFLOZIN PROPANEDIOL
     Indication: TYPE 2 DIABETES MELLITUS
     Route: 048
     Dates: start: 20180326

REACTIONS (5)
  - Blood glucose increased [Unknown]
  - Pruritus [Recovering/Resolving]
  - Weight decreased [Unknown]
  - Blood glucose fluctuation [Unknown]
  - Burning sensation [Unknown]

NARRATIVE: CASE EVENT DATE: 20180405
